FAERS Safety Report 16441490 (Version 3)
Quarter: 2019Q3

REPORT INFORMATION
  Report Type: Spontaneous
  Country: BR (occurrence: BR)
  Receive Date: 20190617
  Receipt Date: 20190814
  Transmission Date: 20191004
  Serious: Yes (Death, Hospitalization, Other)
  Sender: FDA-Public Use
  Company Number: BR-CELGENEUS-BRA-20190506340

PATIENT
  Age: 67 Year
  Sex: Male

DRUGS (1)
  1. VIDAZA [Suspect]
     Active Substance: AZACITIDINE
     Indication: MYELODYSPLASTIC SYNDROME
     Route: 065
     Dates: start: 20190509, end: 201905

REACTIONS (4)
  - Infection [Not Recovered/Not Resolved]
  - Infection [Fatal]
  - Leukaemia [Unknown]
  - Administration site bruise [Not Recovered/Not Resolved]

NARRATIVE: CASE EVENT DATE: 2019
